FAERS Safety Report 7875996-6 (Version None)
Quarter: 2011Q4

REPORT INFORMATION
  Report Type: 
  Country: None (occurrence: None)
  Receive Date: 20111031
  Receipt Date: 20111020
  Transmission Date: 20120403
  Serious: Yes (Hospitalization)
  Sender: FDA-Public Use
  Company Number: TW-CELGENEUS-153-C5013-11062534

PATIENT
  Sex: Female
  Weight: 50.2 kg

DRUGS (27)
  1. REVLIMID [Suspect]
     Indication: MULTIPLE MYELOMA
     Route: 048
     Dates: start: 20110413
  2. REVLIMID [Suspect]
     Dosage: 10 MILLIGRAM
     Route: 048
     Dates: start: 20110707, end: 20110713
  3. BISACODYL [Concomitant]
     Indication: CONSTIPATION
     Route: 065
     Dates: start: 20110713, end: 20110717
  4. ZOLEDRONIC ACID [Concomitant]
     Indication: OSTEOPOROSIS
     Route: 065
     Dates: start: 20110311
  5. ACETAMINOPHEN [Concomitant]
     Indication: SEPSIS
     Route: 048
  6. ALPRAZOLAM [Concomitant]
     Indication: INSOMNIA
     Route: 048
     Dates: start: 20110610, end: 20110613
  7. REVLIMID [Suspect]
     Dosage: 10 MILLIGRAM
     Route: 048
     Dates: start: 20110603
  8. REVLIMID [Suspect]
     Dosage: 10 MILLIGRAM
     Route: 048
     Dates: start: 20110803, end: 20110819
  9. DEXAMETHASONE [Suspect]
     Dosage: 8 MILLIGRAM
     Route: 048
     Dates: start: 20110715, end: 20110716
  10. ACETAMINOPHEN [Concomitant]
     Route: 048
     Dates: start: 20110426
  11. ULTRACET [Concomitant]
     Route: 048
     Dates: start: 20110901
  12. ULTRACET [Concomitant]
     Indication: PAIN
     Route: 048
  13. NYSTATIN [Concomitant]
     Route: 065
     Dates: start: 20110905
  14. DEXAMETHASONE [Suspect]
     Dosage: 8 MILLIGRAM
     Route: 048
     Dates: end: 20110812
  15. PREDNISOLONE [Suspect]
     Indication: MULTIPLE MYELOMA
     Dosage: 10 MILLIGRAM
     Route: 048
     Dates: start: 20110806, end: 20110906
  16. MAGNESIUM OXIDE [Concomitant]
     Indication: CONSTIPATION
     Route: 048
     Dates: start: 20110414
  17. CORAM [Concomitant]
     Indication: INFECTION
     Route: 065
     Dates: start: 20110901
  18. DEXAMETHASONE [Suspect]
     Indication: MULTIPLE MYELOMA
     Dosage: 20 MILLIGRAM
     Route: 065
     Dates: start: 20110413
  19. DEXAMETHASONE [Suspect]
     Dosage: 8 MILLIGRAM
     Route: 048
     Dates: start: 20110813
  20. ENTECAVIR [Concomitant]
     Indication: HERPES ZOSTER
     Dosage: .5 MILLIGRAM
     Route: 048
     Dates: start: 20110311
  21. ZOLPIDEM [Concomitant]
     Indication: INSOMNIA
     Route: 048
     Dates: start: 20110408, end: 20110818
  22. FLUODERM [Concomitant]
     Indication: DERMATITIS
     Route: 061
     Dates: start: 20110628, end: 20110701
  23. DEXAMETHASONE [Suspect]
     Dosage: 16 MILLIGRAM
     Route: 065
     Dates: start: 20110603, end: 20110813
  24. ALUMINUM MAGNESIA [Concomitant]
     Dosage: 10 MILLILITER
     Route: 065
     Dates: start: 20110619
  25. PREDNISOLONE [Suspect]
     Indication: BONE PAIN
     Dosage: 10 MILLIGRAM
     Route: 048
     Dates: start: 20110619
  26. ACETAMINOPHEN [Concomitant]
     Indication: URINARY TRACT INFECTION
     Dosage: 500 MILLIGRAM
     Route: 048
     Dates: start: 20110719
  27. LAMIVUDINE [Concomitant]
     Indication: HEPATITIS B
     Dosage: 100 MILLIGRAM
     Route: 065
     Dates: start: 20110603, end: 20110701

REACTIONS (8)
  - SEPSIS [None]
  - URINARY TRACT INFECTION [None]
  - GINGIVITIS [None]
  - GINGIVAL INFECTION [None]
  - PHARYNGITIS [None]
  - RENAL FAILURE [None]
  - GINGIVITIS ULCERATIVE [None]
  - FEBRILE NEUTROPENIA [None]
